FAERS Safety Report 19993710 (Version 1)
Quarter: 2021Q4

REPORT INFORMATION
  Report Type: Spontaneous
  Country: US (occurrence: US)
  Receive Date: 20211025
  Receipt Date: 20211025
  Transmission Date: 20220304
  Serious: Yes (Hospitalization, Other)
  Sender: FDA-Public Use
  Company Number: US-NOVARTISPH-NVSC2021US241695

PATIENT
  Age: 55 Year
  Sex: Female

DRUGS (1)
  1. CARVEDILOL [Suspect]
     Active Substance: CARVEDILOL
     Indication: Product used for unknown indication
     Dosage: 6.25 MG, 3 HOURS PRIOR TO ARRIVAL, APPROXIMATELY 108 TABLETS
     Route: 065

REACTIONS (3)
  - Cardiogenic shock [Recovering/Resolving]
  - Intentional overdose [Unknown]
  - Suicide attempt [Unknown]
